FAERS Safety Report 9675739 (Version 2)
Quarter: 2013Q4

REPORT INFORMATION
  Report Type: Report from Study
  Country: US (occurrence: US)
  Receive Date: 20131107
  Receipt Date: 20131113
  Transmission Date: 20140711
  Serious: Yes (Hospitalization)
  Sender: FDA-Public Use
  Company Number: US-JNJFOC-20131101093

PATIENT
  Age: 6 Year
  Sex: Female
  Weight: 17.5 kg

DRUGS (17)
  1. REMICADE [Suspect]
     Indication: INFLAMMATORY BOWEL DISEASE
     Route: 042
     Dates: start: 201209
  2. HYDROCORTISONE [Concomitant]
     Route: 065
  3. PREDNISONE [Concomitant]
     Route: 065
  4. PREDNISONE [Concomitant]
     Route: 065
  5. AZATHIOPRINE [Concomitant]
     Route: 065
  6. METHOTREXATE [Concomitant]
     Route: 065
  7. PROBIOTICS [Concomitant]
     Route: 065
  8. VITAMIN D [Concomitant]
     Route: 065
  9. IRON SUCROSE [Concomitant]
     Route: 065
  10. MULTIVITAMINS [Concomitant]
     Route: 065
  11. VANCOMYCIN [Concomitant]
     Route: 065
  12. ZOFRAN [Concomitant]
     Route: 065
  13. PRECEDEX [Concomitant]
     Route: 065
  14. ROBINUL [Concomitant]
     Route: 065
  15. HEPARIN [Concomitant]
     Route: 065
  16. MAGNESIUM CITRATE [Concomitant]
     Route: 065
  17. MIRALAX [Concomitant]
     Route: 065

REACTIONS (1)
  - Colitis [Recovered/Resolved with Sequelae]
